FAERS Safety Report 18031566 (Version 1)
Quarter: 2020Q3

REPORT INFORMATION
  Report Type: Spontaneous
  Country: US (occurrence: US)
  Receive Date: 20200716
  Receipt Date: 20200716
  Transmission Date: 20201103
  Serious: Yes (Hospitalization)
  Sender: FDA-Public Use
  Company Number: DL2020-01

PATIENT
  Age: 29 Year
  Sex: Female

DRUGS (2)
  1. MISOPROSTOL TABLETS, 200 MCG [Suspect]
     Active Substance: MISOPROSTOL
     Route: 002
     Dates: start: 20200307
  2. MIFEPRISTONE TABLETS, 200 MG (DANCO LABS) [Suspect]
     Active Substance: MIFEPRISTONE
     Indication: ABORTION INDUCED
     Route: 048
     Dates: start: 20200306

REACTIONS (4)
  - Anaemia [None]
  - Tachycardia [None]
  - Dizziness [None]
  - Exposure during pregnancy [None]

NARRATIVE: CASE EVENT DATE: 20200317
